FAERS Safety Report 6437595-2 (Version None)
Quarter: 2009Q4

REPORT INFORMATION
  Report Type: 
  Country: None (occurrence: None)
  Receive Date: 20091109
  Receipt Date: 20091022
  Transmission Date: 20100525
  Serious: Yes (Other)
  Sender: FDA-Public Use
  Company Number: AUR-APL-2009-01030

PATIENT
  Age: 46 Year
  Sex: Male

DRUGS (1)
  1. CIPROFLOXACIN [Suspect]
     Indication: PELVIC PAIN
     Dosage: 500MG - Q12HOURS - ORAL
     Route: 048

REACTIONS (3)
  - ALCOHOL INTERACTION [None]
  - ALCOHOL USE [None]
  - ERYTHEMA MULTIFORME [None]
